FAERS Safety Report 4451212-2 (Version None)
Quarter: 2004Q3

REPORT INFORMATION
  Report Type: 
  Country: None (occurrence: None)
  Receive Date: 20040915
  Receipt Date: 20040915
  Transmission Date: 20050211
  Serious: Yes (Hospitalization)
  Sender: FDA-Public Use
  Company Number: None

PATIENT
  Age: 26 Year
  Sex: Female
  Weight: 83.0083 kg

DRUGS (3)
  1. CEFOTAN [Suspect]
     Indication: HAEMOLYTIC ANAEMIA
     Dosage: 2 GM IV Q12H
     Route: 042
     Dates: start: 20040902
  2. CEFOTAN [Suspect]
     Indication: HAEMOLYTIC ANAEMIA
     Dosage: 2 GM IV Q12H
     Route: 042
     Dates: start: 20040903
  3. CEFOTAN [Suspect]
     Indication: HAEMOLYTIC ANAEMIA
     Dosage: 2 GM IV Q12H
     Route: 042
     Dates: start: 20040904

REACTIONS (3)
  - CAESAREAN SECTION [None]
  - DRUG EXPOSURE DURING PREGNANCY [None]
  - HAEMOGLOBIN DECREASED [None]
